FAERS Safety Report 24234055 (Version 1)
Quarter: 2024Q3

REPORT INFORMATION
  Report Type: Spontaneous
  Country: FR (occurrence: FR)
  Receive Date: 20240821
  Receipt Date: 20240821
  Transmission Date: 20241016
  Serious: Yes (Other)
  Sender: BRISTOL MYERS SQUIBB
  Company Number: FR-BRISTOL-MYERS SQUIBB COMPANY-2024-130548

PATIENT
  Age: 60 Year
  Sex: Male
  Weight: 105 kg

DRUGS (2)
  1. OPDIVO [Suspect]
     Active Substance: NIVOLUMAB
     Indication: Pleural mesothelioma malignant
     Dosage: 12 DOSES ADMINISTERED BEFORE TREATMENT DISCONTINUATION
     Route: 042
     Dates: start: 20230804, end: 20240119
  2. YERVOY [Suspect]
     Active Substance: IPILIMUMAB
     Indication: Pleural mesothelioma malignant
     Dosage: 5 DOSES ADMINISTERED BEFORE TREATMENT DISCONTINUATION
     Route: 042
     Dates: start: 20230804, end: 20240119

REACTIONS (1)
  - Immune-mediated encephalopathy [Unknown]

NARRATIVE: CASE EVENT DATE: 20240215
